FAERS Safety Report 4539521-X (Version None)
Quarter: 2004Q4

REPORT INFORMATION
  Report Type: 
  Country: None (occurrence: None)
  Receive Date: 20041222
  Receipt Date: 20041207
  Transmission Date: 20050328
  Serious: Yes (Other)
  Sender: FDA-Public Use
  Company Number: WAES 0408USA00136

PATIENT
  Age: 57 Year
  Sex: Female
  Weight: 59.8748 kg

DRUGS (5)
  1. FOSAMAX [Suspect]
     Indication: OSTEOPOROSIS
     Dosage: 10 MG/DAILY/PO
     Route: 048
     Dates: start: 20040601, end: 20040715
  2. PLACEBO [Suspect]
     Indication: OSTEOPOROSIS
     Dosage: PO
     Route: 048
     Dates: start: 20040601, end: 20040715
  3. MULTIVITAMIN [Concomitant]
  4. CITRUCEL [Concomitant]
  5. ZOMIG [Concomitant]

REACTIONS (4)
  - BLOOD GLUCOSE INCREASED [None]
  - NERVE COMPRESSION [None]
  - PAIN IN EXTREMITY [None]
  - THERAPY NON-RESPONDER [None]
